FAERS Safety Report 8360789-6 (Version None)
Quarter: 2012Q2

REPORT INFORMATION
  Report Type: 
  Country: None (occurrence: None)
  Receive Date: 20120515
  Receipt Date: 20120514
  Transmission Date: 20120825
  Serious: Yes (Other)
  Sender: FDA-Public Use
  Company Number: US-PFIZER INC-2012117367

PATIENT
  Sex: Female
  Weight: 47.166 kg

DRUGS (11)
  1. NEURONTIN [Concomitant]
     Indication: FIBROMYALGIA
     Dosage: UNK
  2. SAVELLA [Concomitant]
     Dosage: UNK
  3. CHANTIX [Suspect]
     Indication: SMOKING CESSATION THERAPY
     Dosage: 0.5 MG, 1X/DAY
     Route: 048
     Dates: start: 20120401
  4. CHANTIX [Suspect]
     Dosage: UNK
     Route: 048
     Dates: end: 20120512
  5. NEURONTIN [Concomitant]
     Indication: SPINAL OSTEOARTHRITIS
  6. NEURONTIN [Concomitant]
     Indication: MUSCLE SPASMS
  7. VICODIN [Concomitant]
     Dosage: UNK
  8. SOMA [Concomitant]
     Dosage: UNK
  9. ACETYLSALICYLIC ACID [Concomitant]
     Dosage: UNK
  10. NEURONTIN [Concomitant]
     Indication: INTERVERTEBRAL DISC PROTRUSION
  11. ZOLOFT [Concomitant]
     Indication: DEPRESSION
     Dosage: UNK

REACTIONS (6)
  - HALLUCINATION [None]
  - IMPAIRED DRIVING ABILITY [None]
  - BALANCE DISORDER [None]
  - FEAR [None]
  - ABASIA [None]
  - DEPRESSION [None]
